FAERS Safety Report 9355509 (Version 3)
Quarter: 2014Q2

REPORT INFORMATION
  Report Type: Spontaneous
  Country: US (occurrence: US)
  Receive Date: 20130619
  Receipt Date: 20140422
  Transmission Date: 20141212
  Serious: Yes (Other)
  Sender: FDA-Public Use
  Company Number: US-SANOFI-AVENTIS-2013SA044050

PATIENT
  Age: 46 Year
  Sex: Female

DRUGS (4)
  1. TAXOTERE [Suspect]
     Indication: BREAST CANCER
     Route: 041
     Dates: start: 2010
  2. DOCETAXEL WINTHROP [Suspect]
     Indication: BREAST CANCER
     Route: 065
  3. CARBOPLATIN [Concomitant]
     Indication: BREAST CANCER
     Dates: start: 2010
  4. HERCEPTIN [Concomitant]
     Indication: BREAST CANCER

REACTIONS (2)
  - Suicidal ideation [Unknown]
  - Alopecia [Not Recovered/Not Resolved]
